FAERS Safety Report 10472113 (Version 1)
Quarter: 2014Q3

REPORT INFORMATION
  Report Type: Spontaneous
  Country: CA (occurrence: CA)
  Receive Date: 20140924
  Receipt Date: 20140924
  Transmission Date: 20150326
  Serious: Yes (Hospitalization)
  Sender: FDA-Public Use
  Company Number: CA-INDICUS PHARMA-000278

PATIENT
  Age: 64 Year
  Sex: Male

DRUGS (1)
  1. DONEPEZIL/DONEPEZIL HYDROCHLORIDE [Suspect]
     Active Substance: DONEPEZIL

REACTIONS (5)
  - Irritability [None]
  - Accidental exposure to product [Unknown]
  - Mania [Unknown]
  - Aggression [None]
  - Agitation [None]
